FAERS Safety Report 5401138-2 (Version None)
Quarter: 2007Q3

REPORT INFORMATION
  Report Type: 
  Country: None (occurrence: None)
  Receive Date: 20070731
  Receipt Date: 20070424
  Transmission Date: 20080115
  Serious: Yes (Death)
  Sender: FDA-Public Use
  Company Number: US-ASTRAZENECA-2007UW08047

PATIENT
  Age: 51 Year
  Sex: Female

DRUGS (8)
  1. FASLODEX [Suspect]
     Indication: BREAST CANCER
     Dates: start: 20061215, end: 20061215
  2. FASLODEX [Suspect]
     Dates: start: 20070112, end: 20070112
  3. FASLODEX [Suspect]
     Dates: start: 20070209, end: 20070209
  4. SPIRONOLACTONE [Concomitant]
     Route: 048
  5. LORTAB [Concomitant]
     Dosage: 5/500 Q 6H PRN
  6. NADOLOL [Concomitant]
  7. ZOFRAN [Concomitant]
     Dosage: Q 4 HOURS
     Route: 048
  8. VITAMIN B6 [Concomitant]

REACTIONS (2)
  - HEPATORENAL SYNDROME [None]
  - METASTASES TO CENTRAL NERVOUS SYSTEM [None]
